FAERS Safety Report 5572398-2 (Version None)
Quarter: 2007Q4

REPORT INFORMATION
  Report Type: 
  Country: None (occurrence: None)
  Receive Date: 20071219
  Receipt Date: 20071206
  Transmission Date: 20080405
  Serious: Yes (Other)
  Sender: FDA-Public Use
  Company Number: 2007AL005281

PATIENT
  Age: 45 Year
  Sex: Female

DRUGS (5)
  1. MIRTAZAPINE [Suspect]
     Indication: SLEEP DISORDER
     Dosage: 15 MG;QD;PO
     Route: 048
     Dates: start: 20071024
  2. EZETIMIBE [Concomitant]
  3. FLIXONASE [Concomitant]
  4. INSULIN [Concomitant]
  5. MODANAFIL [Concomitant]

REACTIONS (1)
  - BLOOD GLUCOSE INCREASED [None]
